FAERS Safety Report 5278280-2 (Version None)
Quarter: 2007Q1

REPORT INFORMATION
  Report Type: 
  Country: None (occurrence: None)
  Receive Date: 20061207
  Receipt Date: 20040513
  Transmission Date: 20070707
  Serious: No
  Sender: FDA-Public Use
  Company Number: 2004UW07184

PATIENT
  Age: 34 Year
  Sex: Female
  Weight: 59.8748 kg

DRUGS (1)
  1. TOPROL-XL [Suspect]
     Dosage: 25 MG PO
     Route: 048

REACTIONS (1)
  - DYSPEPSIA [None]
